FAERS Safety Report 19940368 (Version 1)
Quarter: 2021Q4

REPORT INFORMATION
  Report Type: Other
  Country: CA (occurrence: CA)
  Receive Date: 20211011
  Receipt Date: 20211011
  Transmission Date: 20220303
  Serious: Yes (Hospitalization)
  Sender: FDA-Public Use
  Company Number: CA-APOTEX-2021AP043800

PATIENT
  Age: 94 Year
  Sex: Female
  Weight: 49 kg

DRUGS (2)
  1. RISPERIDONE [Suspect]
     Active Substance: RISPERIDONE
     Indication: Agitation
     Dosage: 1 MILLIGRAM, QD
     Route: 048
  2. CILAZAPRIL MONOHYDRATE\HYDROCHLOROTHIAZIDE [Suspect]
     Active Substance: CILAZAPRIL MONOHYDRATE\HYDROCHLOROTHIAZIDE
     Indication: Hypertension
     Dosage: 1 DOSAGE FORM, QD
     Route: 048

REACTIONS (2)
  - Hyponatraemia [Recovered/Resolved]
  - Confusional state [Recovered/Resolved]
